FAERS Safety Report 17182072 (Version 7)
Quarter: 2020Q1

REPORT INFORMATION
  Report Type: Report from Study
  Country: US (occurrence: US)
  Receive Date: 20191220
  Receipt Date: 20200324
  Transmission Date: 20200409
  Serious: Yes (Other)
  Sender: FDA-Public Use
  Company Number: US-GLAXOSMITHKLINE-US2019TSO225895

PATIENT
  Sex: Male
  Weight: 72 kg

DRUGS (4)
  1. NIRAPARIB [Suspect]
     Active Substance: NIRAPARIB
     Indication: FALLOPIAN TUBE CANCER
     Dosage: 100 MG, QD WITHOUT FOOD
     Route: 048
     Dates: start: 20191204
  2. NIRAPARIB [Suspect]
     Active Substance: NIRAPARIB
     Dosage: 300 MG, QD
     Route: 048
  3. NIRAPARIB [Suspect]
     Active Substance: NIRAPARIB
     Dosage: 100 MG, QD
  4. NIRAPARIB [Suspect]
     Active Substance: NIRAPARIB
     Dosage: 200 MG, QD AT NOON WITHOUT FOOD
     Route: 048
     Dates: start: 201912

REACTIONS (11)
  - Haemorrhage [Unknown]
  - Contusion [Not Recovered/Not Resolved]
  - Constipation [Recovered/Resolved]
  - Nausea [Recovered/Resolved]
  - Platelet count decreased [Not Recovered/Not Resolved]
  - Weight decreased [Unknown]
  - Underdose [Unknown]
  - Depression [Recovered/Resolved]
  - Neuropathy peripheral [Recovering/Resolving]
  - Rotator cuff syndrome [Unknown]
  - Fatigue [Not Recovered/Not Resolved]
